FAERS Safety Report 9432437 (Version 1)
Quarter: 2013Q3

REPORT INFORMATION
  Report Type: Spontaneous
  Country: GB (occurrence: GB)
  Receive Date: 20130731
  Receipt Date: 20130731
  Transmission Date: 20140515
  Serious: Yes (Other)
  Sender: FDA-Public Use
  Company Number: GB-PFIZER INC-2013217751

PATIENT
  Age: 46 Year
  Sex: Female
  Weight: 64.41 kg

DRUGS (2)
  1. DEPO-PROVERA [Suspect]
     Indication: CONTRACEPTION
     Dosage: 1 DF, UNK
     Route: 051
     Dates: start: 19990903, end: 20121218
  2. ESTRIOL [Concomitant]

REACTIONS (12)
  - Uterine disorder [Not Recovered/Not Resolved]
  - Coital bleeding [Unknown]
  - Diarrhoea [Unknown]
  - Dizziness [Unknown]
  - Dry skin [Unknown]
  - Hot flush [Unknown]
  - Nausea [Unknown]
  - Night sweats [Unknown]
  - Metrorrhagia [Unknown]
  - Abdominal pain upper [Unknown]
  - Vomiting [Unknown]
  - Palpitations [Unknown]
